FAERS Safety Report 10636084 (Version 2)
Quarter: 2015Q2

REPORT INFORMATION
  Report Type: Spontaneous
  Country: IT (occurrence: IT)
  Receive Date: 20141205
  Receipt Date: 20150413
  Transmission Date: 20150821
  Serious: Yes (Hospitalization)
  Sender: FDA-Public Use
  Company Number: IT-ALLERGAN-1424603US

PATIENT
  Age: 78 Year
  Sex: Female

DRUGS (7)
  1. EUTIROX [Suspect]
     Active Substance: LEVOTHYROXINE SODIUM
     Indication: PRODUCT USED FOR UNKNOWN INDICATION
     Dosage: 25 MG, UNK
  2. FUROSEMIDE. [Concomitant]
     Active Substance: FUROSEMIDE
     Dosage: 25 MG, UNK
  3. CARDICORON [Concomitant]
     Dosage: 2.5 MG, UNK
  4. CARDIOASPIRINA [Concomitant]
     Active Substance: ASPIRIN
     Dosage: 100 MG, UNK
  5. DOXAZOSIN MESILATE [Concomitant]
     Active Substance: DOXAZOSIN MESYLATE
     Dosage: 2 MG, UNK
  6. EXOCIN 0.3% UNGUENTO OFTALMICO [Suspect]
     Active Substance: OFLOXACIN
     Indication: CATARACT OPERATION COMPLICATION
     Dosage: 2 GTT, UNK
     Route: 031
     Dates: start: 20141125, end: 20141125
  7. ALLOPURINOLO [Concomitant]
     Active Substance: ALLOPURINOL
     Dosage: 300 MG, UNK

REACTIONS (2)
  - Hypotension [Recovered/Resolved]
  - Syncope [Recovered/Resolved]

NARRATIVE: CASE EVENT DATE: 20141125
